FAERS Safety Report 15383425 (Version 1)
Quarter: 2018Q3

REPORT INFORMATION
  Report Type: Spontaneous
  Country: US (occurrence: US)
  Receive Date: 20180913
  Receipt Date: 20180913
  Transmission Date: 20181010
  Serious: No
  Sender: FDA-Public Use
  Company Number: US-ASTELLAS-2017US043482

PATIENT
  Age: 89 Year
  Sex: Male

DRUGS (1)
  1. XTANDI [Suspect]
     Active Substance: ENZALUTAMIDE
     Indication: PROSTATE CANCER
     Route: 048
     Dates: start: 20170601

REACTIONS (4)
  - Hyperhidrosis [Unknown]
  - Sinus disorder [Unknown]
  - Abdominal discomfort [Unknown]
  - Hot flush [Unknown]

NARRATIVE: CASE EVENT DATE: 20171023
